FAERS Safety Report 13447195 (Version 2)
Quarter: 2017Q2

REPORT INFORMATION
  Report Type: Spontaneous
  Country: IT (occurrence: IT)
  Receive Date: 20170417
  Receipt Date: 20170502
  Transmission Date: 20170830
  Serious: Yes (Other)
  Sender: FDA-Public Use
  Company Number: IT-TEVA-758516ACC

PATIENT
  Age: 45 Year
  Sex: Female
  Weight: 75 kg

DRUGS (2)
  1. PACLITAXEL. [Suspect]
     Active Substance: PACLITAXEL
     Indication: BREAST CANCER
     Dosage: 145 MG CYCLICAL
     Route: 042
     Dates: start: 20161123, end: 20170214
  2. HERCEPTIN [Suspect]
     Active Substance: TRASTUZUMAB
     Indication: BREAST CANCER
     Dosage: 600 MG CYCLICAL
     Route: 058
     Dates: start: 20161123, end: 20170307

REACTIONS (1)
  - Orbital oedema [Not Recovered/Not Resolved]

NARRATIVE: CASE EVENT DATE: 20161218
